FAERS Safety Report 8791104 (Version 1)
Quarter: 2012Q4

REPORT INFORMATION
  Report Type: Spontaneous
  Country: GB (occurrence: None)
  Receive Date: 20120911
  Receipt Date: 20120911
  Transmission Date: 20130627
  Serious: Yes (Other)
  Sender: FDA-Public Use
  Company Number: 2012P1055858

PATIENT
  Age: 21 Year
  Sex: Male

DRUGS (4)
  1. METRONIDAZOLE [Suspect]
     Route: 042
  2. AMOXICILLIN [Suspect]
     Route: 042
  3. DEXAMETHASONE [Concomitant]
  4. HARTMAN^S SOLUTION [Concomitant]

REACTIONS (15)
  - Tooth disorder [None]
  - Sepsis [None]
  - Jarisch-Herxheimer reaction [None]
  - Chills [None]
  - Agitation [None]
  - Aphonia [None]
  - Delusion [None]
  - Respiratory alkalosis [None]
  - Hyperventilation [None]
  - Sinus tachycardia [None]
  - Blood pressure increased [None]
  - Vomiting [None]
  - Hallucinations, mixed [None]
  - Feeling of despair [None]
  - Confusional state [None]
